FAERS Safety Report 10419951 (Version 2)
Quarter: 2014Q3

REPORT INFORMATION
  Report Type: Spontaneous
  Country: US (occurrence: None)
  Receive Date: 20140828
  Receipt Date: 20140910
  Transmission Date: 20150326
  Serious: Yes (Hospitalization, Disabling)
  Sender: FDA-Public Use
  Company Number: 2014-US-010509

PATIENT
  Age: 77 Year
  Sex: Male

DRUGS (2)
  1. XYREM [Suspect]
     Active Substance: SODIUM OXYBATE
     Indication: INSOMNIA
     Route: 048
     Dates: start: 200401, end: 2004
  2. XYREM [Suspect]
     Active Substance: SODIUM OXYBATE
     Indication: DYSKINESIA
     Route: 048
     Dates: start: 200401, end: 2004

REACTIONS (5)
  - Off label use [None]
  - Somnolence [None]
  - Neck injury [None]
  - Road traffic accident [None]
  - Limb injury [None]

NARRATIVE: CASE EVENT DATE: 2006
